FAERS Safety Report 25031048 (Version 1)
Quarter: 2025Q1

REPORT INFORMATION
  Report Type: Spontaneous
  Country: DE (occurrence: DE)
  Receive Date: 20250303
  Receipt Date: 20250303
  Transmission Date: 20250408
  Serious: Yes (Death, Hospitalization, Other)
  Sender: CELLTRION
  Company Number: DE-ELI_LILLY_AND_COMPANY-DE202407013607

PATIENT

DRUGS (2)
  1. RITUXIMAB [Suspect]
     Active Substance: RITUXIMAB
     Indication: Product used for unknown indication
  2. PIRTOBRUTINIB [Suspect]
     Active Substance: PIRTOBRUTINIB
     Indication: Mantle cell lymphoma
     Route: 048
     Dates: start: 20240423, end: 20240711

REACTIONS (16)
  - Respiratory failure [Fatal]
  - Pneumonia fungal [Fatal]
  - Malignant neoplasm progression [Unknown]
  - General physical health deterioration [Unknown]
  - Cardiac failure [Unknown]
  - Anaphylactic reaction [Unknown]
  - Atrial fibrillation [Unknown]
  - Atypical pneumonia [Unknown]
  - Pneumonia [Unknown]
  - Tumour lysis syndrome [Unknown]
  - Respiratory acidosis [Unknown]
  - Lymphadenopathy mediastinal [Unknown]
  - Liver disorder [Unknown]
  - Blood bilirubin increased [Unknown]
  - Splenomegaly [Unknown]
  - Pyrexia [Unknown]
